FAERS Safety Report 7609141-9 (Version None)
Quarter: 2011Q3

REPORT INFORMATION
  Report Type: 
  Country: None (occurrence: None)
  Receive Date: 20110714
  Receipt Date: 20110705
  Transmission Date: 20111222
  Serious: Yes (Hospitalization, Other)
  Sender: FDA-Public Use
  Company Number: US-ABBOTT-11P-163-0710572-00

PATIENT
  Sex: Female
  Weight: 64.468 kg

DRUGS (8)
  1. ZOLOFT [Concomitant]
     Indication: PRODUCT USED FOR UNKNOWN INDICATION
  2. FERROUS SULFATE TAB [Concomitant]
     Indication: PRODUCT USED FOR UNKNOWN INDICATION
  3. HUMIRA [Suspect]
     Indication: CROHN'S DISEASE
     Dates: start: 20110125, end: 20110201
  4. PREDNISONE [Concomitant]
     Indication: PRODUCT USED FOR UNKNOWN INDICATION
  5. VITAMIN B-12 [Concomitant]
     Indication: PRODUCT USED FOR UNKNOWN INDICATION
  6. XANAX [Concomitant]
     Indication: PRODUCT USED FOR UNKNOWN INDICATION
  7. HUMIRA [Suspect]
     Dates: start: 20110510
  8. XANAX [Concomitant]

REACTIONS (6)
  - OVARIAN CYST [None]
  - COLECTOMY [None]
  - FISTULA [None]
  - ABDOMINAL PAIN LOWER [None]
  - ABSCESS [None]
  - MUSCLE SPASMS [None]
